FAERS Safety Report 10183141 (Version 1)
Quarter: 2014Q2

REPORT INFORMATION
  Report Type: Spontaneous
  Country: FR (occurrence: FR)
  Receive Date: 20140520
  Receipt Date: 20140520
  Transmission Date: 20141212
  Serious: Yes (Hospitalization)
  Sender: FDA-Public Use
  Company Number: FR-JNJFOC-20140510612

PATIENT
  Sex: Female

DRUGS (17)
  1. TRAMADOL HYDROCHLORIDE [Suspect]
     Indication: PAIN
     Route: 048
     Dates: start: 201403, end: 20140404
  2. RISPERDAL [Interacting]
     Indication: DEPRESSION
     Route: 048
     Dates: end: 20140404
  3. DEROXAT [Interacting]
     Indication: DEPRESSION
     Route: 048
     Dates: end: 20140404
  4. ZYPREXA [Interacting]
     Indication: DEPRESSION
     Route: 048
     Dates: end: 20140404
  5. TRANXENE [Interacting]
     Indication: DEPRESSION
     Route: 048
     Dates: end: 20140404
  6. TRANXENE [Interacting]
     Indication: DEPRESSION
     Route: 048
     Dates: end: 20140404
  7. TERCIAN [Interacting]
     Indication: PRODUCT USED FOR UNKNOWN INDICATION
     Route: 048
     Dates: start: 201403, end: 20140404
  8. STILNOX [Suspect]
     Indication: DEPRESSION
     Route: 048
     Dates: start: 201309, end: 20140404
  9. BETAHISTINE [Concomitant]
     Route: 065
  10. TAREG [Concomitant]
     Route: 065
  11. TAHOR [Concomitant]
     Route: 065
  12. CHONDROSULF [Concomitant]
     Route: 065
  13. KALEORID [Concomitant]
     Route: 065
  14. EFFERALGAN [Concomitant]
     Route: 065
  15. IMUREL [Concomitant]
     Route: 065
  16. KARDEGIC [Concomitant]
     Route: 065
  17. CIPROFLOXACIN [Concomitant]
     Indication: URINARY TRACT INFECTION
     Route: 065
     Dates: start: 20140402

REACTIONS (4)
  - Respiratory acidosis [Recovered/Resolved]
  - Drug interaction [Recovered/Resolved]
  - Somnolence [Recovered/Resolved]
  - Medication error [Unknown]
